FAERS Safety Report 9483209 (Version 1)
Quarter: 2013Q3

REPORT INFORMATION
  Report Type: Spontaneous
  Country: US (occurrence: US)
  Receive Date: 20130828
  Receipt Date: 20130828
  Transmission Date: 20140515
  Serious: No
  Sender: FDA-Public Use
  Company Number: US-MUTUAL PHARMACEUTICAL COMPANY, INC.-DXCY20120019

PATIENT
  Age: 70 Year
  Sex: Male
  Weight: 93.07 kg

DRUGS (3)
  1. DOXYCYCLINE HYCLATE CAPSULES 50 MG [Suspect]
     Indication: LYME DISEASE
     Route: 048
     Dates: start: 20121123, end: 20121205
  2. BABY ASPIRIN [Concomitant]
     Indication: CARDIOVASCULAR EVENT PROPHYLAXIS
     Route: 048
  3. FISH OIL [Concomitant]
     Indication: NUTRITIONAL SUPPLEMENTATION
     Route: 048

REACTIONS (3)
  - Swelling face [Recovering/Resolving]
  - Lip swelling [Recovering/Resolving]
  - Drug hypersensitivity [Recovering/Resolving]
